FAERS Safety Report 8530954-3 (Version None)
Quarter: 2012Q3

REPORT INFORMATION
  Report Type: 
  Country: None (occurrence: None)
  Receive Date: 20120711
  Receipt Date: 20120703
  Transmission Date: 20120928
  Serious: Yes (Hospitalization)
  Sender: FDA-Public Use
  Company Number: B0812362A

PATIENT
  Age: 33 Year
  Sex: Male

DRUGS (3)
  1. CLONAZEPAM [Suspect]
     Indication: BIPOLAR DISORDER
     Dosage: UNK
  2. LAMOTRIGINE [Suspect]
     Indication: BIPOLAR DISORDER
     Dosage: UNK
  3. LITHIUM CARBONATE [Concomitant]

REACTIONS (9)
  - ENCEPHALOPATHY [None]
  - RALES [None]
  - LOSS OF CONSCIOUSNESS [None]
  - CHILLS [None]
  - BLOOD PRESSURE DECREASED [None]
  - TOXICITY TO VARIOUS AGENTS [None]
  - SINUS TACHYCARDIA [None]
  - DYSPNOEA [None]
  - GRAND MAL CONVULSION [None]
